FAERS Safety Report 23875619 (Version 2)
Quarter: 2024Q2

REPORT INFORMATION
  Report Type: Spontaneous
  Country: US (occurrence: US)
  Receive Date: 20240520
  Receipt Date: 20240531
  Transmission Date: 20240716
  Serious: No
  Sender: FDA-Public Use
  Company Number: US-BRISTOL-MYERS SQUIBB COMPANY-2024-078231

PATIENT
  Age: 83 Year
  Sex: Male
  Weight: 62.6 kg

DRUGS (2)
  1. POMALYST [Suspect]
     Active Substance: POMALIDOMIDE
     Indication: Plasma cell myeloma
     Dosage: ONCE DAILY
     Route: 048
     Dates: start: 202404
  2. POMALYST [Suspect]
     Active Substance: POMALIDOMIDE
     Dosage: FREQUENCY: ONCE DAILY ON MONDAY, WEDNESDAY AND FRIDAY
     Route: 048

REACTIONS (4)
  - Diarrhoea [Unknown]
  - Movement disorder [Unknown]
  - Hypotension [Unknown]
  - Off label use [Unknown]
